FAERS Safety Report 7851658-6 (Version None)
Quarter: 2011Q4

REPORT INFORMATION
  Report Type: 
  Country: None (occurrence: None)
  Receive Date: 20111026
  Receipt Date: 20111018
  Transmission Date: 20120403
  Serious: Yes (Death)
  Sender: FDA-Public Use
  Company Number: IE-AMGEN-IRLSP2011053982

PATIENT
  Age: 79 Year
  Sex: Female

DRUGS (5)
  1. ARANESP [Suspect]
     Indication: PRODUCT USED FOR UNKNOWN INDICATION
     Dosage: 500 MUG, Q2WK
     Route: 058
     Dates: start: 20110401, end: 20111017
  2. MOTILIUM                           /00498201/ [Concomitant]
  3. LEXOTAN [Concomitant]
  4. NEXIUM [Concomitant]
  5. XYZAL [Concomitant]

REACTIONS (1)
  - DEATH [None]
